FAERS Safety Report 18341997 (Version 1)
Quarter: 2020Q4

REPORT INFORMATION
  Report Type: Other
  Country: JP (occurrence: JP)
  Receive Date: 20201005
  Receipt Date: 20201005
  Transmission Date: 20210113
  Serious: Yes (Other)
  Sender: FDA-Public Use
  Company Number: JP-ROCHE-2687758

PATIENT

DRUGS (4)
  1. IFOSFAMIDE. [Suspect]
     Active Substance: IFOSFAMIDE
     Indication: DIFFUSE LARGE B-CELL LYMPHOMA REFRACTORY
     Dosage: FOR 3 DAYS  (FROM DAY 2 TO 4) OVER 2 H IN 21 DAY CYCLE.
     Route: 042
  2. ETOPOSIDE. [Suspect]
     Active Substance: ETOPOSIDE
     Indication: DIFFUSE LARGE B-CELL LYMPHOMA REFRACTORY
     Dosage: FOR 3 DAYS  (FROM DAY 2 TO 4) IN 21 DAY CYCLE.
     Route: 042
  3. CARBOPLATIN. [Suspect]
     Active Substance: CARBOPLATIN
     Indication: DIFFUSE LARGE B-CELL LYMPHOMA REFRACTORY
     Dosage: 5 X AUC) I.V. OVER 1 H IN 21 DAY CYCLE.
     Route: 042
  4. RITUXIMAB. [Suspect]
     Active Substance: RITUXIMAB
     Indication: DIFFUSE LARGE B-CELL LYMPHOMA REFRACTORY
     Dosage: ON DAY 1 OF 21 DAYS CYCLE.
     Route: 041

REACTIONS (10)
  - Febrile neutropenia [Unknown]
  - Pneumonia [Unknown]
  - Urinary tract infection [Unknown]
  - Blood creatinine increased [Recovered/Resolved]
  - Platelet count decreased [Unknown]
  - Nausea [Unknown]
  - White blood cell count decreased [Unknown]
  - Sepsis [Unknown]
  - Myelosuppression [Unknown]
  - Anaemia [Unknown]
